FAERS Safety Report 9185063 (Version 1)
Quarter: 2013Q1

REPORT INFORMATION
  Report Type: Spontaneous
  Country: GB (occurrence: GB)
  Receive Date: 20130325
  Receipt Date: 20130325
  Transmission Date: 20140127
  Serious: Yes (Life-Threatening, Other)
  Sender: FDA-Public Use
  Company Number: GB-TEVA-392856ISR

PATIENT
  Age: 70 Year
  Sex: Male
  Weight: 93 kg

DRUGS (11)
  1. AMIODARONE [Suspect]
     Indication: TACHYCARDIA
     Dosage: 200 MILLIGRAM DAILY;
     Route: 048
     Dates: start: 20121105, end: 20130215
  2. CLOPIDOGREL [Concomitant]
     Dosage: 75 MILLIGRAM DAILY;
  3. CO-DYDRAMOL [Concomitant]
     Dosage: 10/500MG. TAKEN OCCASIONALLY.
  4. DICLOFENAC [Concomitant]
     Dosage: 100 MILLIGRAM DAILY;
  5. FOLIC ACID [Concomitant]
     Dosage: 5 MILLIGRAM DAILY;
  6. METHOTREXATE [Concomitant]
     Dosage: 2.1429 MILLIGRAM DAILY;
  7. HYDROXYCHLOROQUINE [Concomitant]
     Dosage: 200 MILLIGRAM DAILY;
  8. SULFASALAZINE [Concomitant]
     Dosage: 2000 MILLIGRAM DAILY;
  9. FLUTICASONE PROPIONATE [Concomitant]
     Dosage: USED OCCASIONALLY.
  10. BISOPROLOL [Concomitant]
     Dosage: 2.5 MILLIGRAM DAILY;
  11. WARFARIN [Concomitant]
     Dosage: TO BE TAKEN AS DIRECTED.

REACTIONS (6)
  - Skin lesion [Not Recovered/Not Resolved]
  - Paraesthesia [Not Recovered/Not Resolved]
  - Hypoaesthesia [Not Recovered/Not Resolved]
  - Epistaxis [Unknown]
  - Plicated tongue [Unknown]
  - Skin fissures [Unknown]
